FAERS Safety Report 20990008 (Version 1)
Quarter: 2022Q2

REPORT INFORMATION
  Report Type: Spontaneous
  Country: BR (occurrence: BR)
  Receive Date: 20220621
  Receipt Date: 20220621
  Transmission Date: 20220721
  Serious: Yes (Hospitalization, Other)
  Sender: FDA-Public Use
  Company Number: BR-STRIDES ARCOLAB LIMITED-2022SP007491

PATIENT
  Age: 38 Year
  Sex: Male

DRUGS (24)
  1. PREDNISOLONE [Suspect]
     Active Substance: PREDNISOLONE
     Indication: Blastic plasmacytoid dendritic cell neoplasia
     Dosage: UNK UNK, CYCLICAL POMP PROTOCOL; C1D1; RECEIVED 4 CYCLES IN TOTAL
     Route: 065
     Dates: start: 20200930
  2. PREDNISOLONE [Suspect]
     Active Substance: PREDNISOLONE
     Dosage: UNK UNK, CYCLICAL POMP PROTOCOL; C2D1; RECEIVED 4 CYCLES IN TOTAL
     Route: 065
     Dates: start: 20201124
  3. PREDNISOLONE [Suspect]
     Active Substance: PREDNISOLONE
     Dosage: UNK UNK, CYCLICAL POMP PROTOCOL; C3D1; RECEIVED 4 CYCLES IN TOTAL
     Route: 065
     Dates: start: 20201223
  4. PREDNISOLONE [Suspect]
     Active Substance: PREDNISOLONE
     Dosage: UNK UNK, CYCLICAL POMP PROTOCOL; C4D1; RECEIVED 4 CYCLES IN TOTAL
     Route: 065
     Dates: start: 20210127
  5. METHOTREXATE [Suspect]
     Active Substance: METHOTREXATE
     Indication: Blastic plasmacytoid dendritic cell neoplasia
     Dosage: UNK UNK, CYCLICAL POMP PROTOCOL; C1D1; RECEIVED 4 CYCLES IN TOTAL
     Route: 065
     Dates: start: 20200930
  6. METHOTREXATE [Suspect]
     Active Substance: METHOTREXATE
     Dosage: UNK UNK, CYCLICAL POMP PROTOCOL; C2D1; RECEIVED 4 CYCLES IN TOTAL DOSE ADJUSTED TO 50%
     Route: 065
     Dates: start: 20201124
  7. METHOTREXATE [Suspect]
     Active Substance: METHOTREXATE
     Dosage: UNK UNK, CYCLICAL POMP PROTOCOL; C3D1; RECEIVED 4 CYCLES IN TOTAL DOSE ADJUSTED TO 50%
     Route: 065
     Dates: start: 20201223
  8. METHOTREXATE [Suspect]
     Active Substance: METHOTREXATE
     Dosage: UNK UNK, CYCLICAL POMP PROTOCOL; C4D1; RECEIVED 4 CYCLES IN TOTAL DOSE ADJUSTED TO 75%
     Route: 065
     Dates: start: 20210127
  9. DEXAMETHASONE [Suspect]
     Active Substance: DEXAMETHASONE
     Indication: Blastic plasmacytoid dendritic cell neoplasia
     Dosage: UNK UNK, CYCLICAL AS A PART OF HYPERCVAD PROTOCOL; RECEIVED EIGHT CYCLES
     Route: 065
  10. ETOPOSIDE [Suspect]
     Active Substance: ETOPOSIDE
     Indication: Blastic plasmacytoid dendritic cell neoplasia
     Dosage: UNK, CYCLICAL TWO CYCLES OF MEC CHEMOTHERAPY
     Route: 065
     Dates: start: 202007
  11. MERCAPTOPURINE [Suspect]
     Active Substance: MERCAPTOPURINE
     Indication: Blastic plasmacytoid dendritic cell neoplasia
     Dosage: UNK UNK, CYCLICAL POMP PROTOCOL; C1D1; RECEIVED 4 CYCLES IN TOTAL
     Route: 065
     Dates: start: 20200930
  12. MERCAPTOPURINE [Suspect]
     Active Substance: MERCAPTOPURINE
     Dosage: UNK UNK, CYCLICAL POMP PROTOCOL; C2D1; RECEIVED 4 CYCLES IN TOTAL DOSE ADJUSTED TO 50%
     Route: 065
     Dates: start: 20201124
  13. MERCAPTOPURINE [Suspect]
     Active Substance: MERCAPTOPURINE
     Dosage: UNK UNK, CYCLICAL POMP PROTOCOL; C3D1; RECEIVED 4 CYCLES IN TOTAL DOSE ADJUSTED TO 50%
     Route: 065
     Dates: start: 20201223
  14. MERCAPTOPURINE [Suspect]
     Active Substance: MERCAPTOPURINE
     Dosage: UNK UNK, CYCLICAL POMP PROTOCOL; C4D1; RECEIVED 4 CYCLES IN TOTAL DOSE ADJUSTED TO 50%
     Route: 065
     Dates: start: 20210127
  15. VINCRISTINE [Suspect]
     Active Substance: VINCRISTINE
     Indication: Blastic plasmacytoid dendritic cell neoplasia
     Dosage: UNK UNK, CYCLICAL POMP PROTOCOL; C1D1; RECEIVED 4 CYCLES IN TOTAL
     Route: 065
     Dates: start: 20200930
  16. VINCRISTINE [Suspect]
     Active Substance: VINCRISTINE
     Dosage: UNK UNK, CYCLICAL POMP PROTOCOL; C2D1; RECEIVED 4 CYCLES IN TOTAL
     Route: 065
     Dates: start: 20201124
  17. VINCRISTINE [Suspect]
     Active Substance: VINCRISTINE
     Dosage: UNK UNK, CYCLICAL POMP PROTOCOL; C3D1; RECEIVED 4 CYCLES IN TOTAL
     Route: 065
     Dates: start: 20201223
  18. VINCRISTINE [Suspect]
     Active Substance: VINCRISTINE
     Dosage: UNK UNK, CYCLICAL POMP PROTOCOL; C4D1; RECEIVED 4 CYCLES IN TOTAL
     Route: 065
     Dates: start: 20210127
  19. VINCRISTINE [Suspect]
     Active Substance: VINCRISTINE
     Dosage: UNK UNK, CYCLICAL AS A PART OF HYPERCVAD PROTOCOL; RECEIVED EIGHT CYCLES
     Route: 065
  20. CYCLOPHOSPHAMIDE [Suspect]
     Active Substance: CYCLOPHOSPHAMIDE
     Indication: Blastic plasmacytoid dendritic cell neoplasia
     Dosage: UNK UNK, CYCLICAL AS A PART OF HYPERCVAD PROTOCOL; RECEIVED EIGHT CYCLES
     Route: 065
  21. DOXORUBICIN [Suspect]
     Active Substance: DOXORUBICIN
     Indication: Blastic plasmacytoid dendritic cell neoplasia
     Dosage: UNK UNK, CYCLICAL AS A PART OF HYPERCVAD PROTOCOL; RECEIVED EIGHT CYCLES
     Route: 065
  22. MITOXANTRONE [Suspect]
     Active Substance: MITOXANTRONE HYDROCHLORIDE
     Indication: Blastic plasmacytoid dendritic cell neoplasia
     Dosage: UNK UNK, CYCLICAL TWO CYCLES OF MEC CHEMOTHERAPY
     Route: 065
     Dates: start: 202007
  23. CYTARABINE [Suspect]
     Active Substance: CYTARABINE
     Indication: Blastic plasmacytoid dendritic cell neoplasia
     Dosage: UNK UNK, CYCLICAL TWO CYCLES OF MEC CHEMOTHERAPY
     Route: 065
     Dates: start: 202007
  24. ENALAPRIL [Concomitant]
     Active Substance: ENALAPRIL
     Indication: Hypertension
     Dosage: 20 MILLIGRAM PER DAY
     Route: 065

REACTIONS (4)
  - Myelosuppression [Unknown]
  - Herpes zoster [Unknown]
  - Drug ineffective [Unknown]
  - Off label use [Unknown]

NARRATIVE: CASE EVENT DATE: 20201101
